FAERS Safety Report 5783303-8 (Version None)
Quarter: 2008Q2

REPORT INFORMATION
  Report Type: 
  Country: None (occurrence: None)
  Receive Date: 20080605
  Receipt Date: 20080314
  Transmission Date: 20081010
  Serious: No
  Sender: FDA-Public Use
  Company Number: A0715442A

PATIENT
  Age: 57 Year
  Sex: Male

DRUGS (1)
  1. ALLI [Suspect]
     Dates: start: 20070901, end: 20080306

REACTIONS (3)
  - ARTHRALGIA [None]
  - DIARRHOEA [None]
  - FLATULENCE [None]
